FAERS Safety Report 9141077 (Version 1)
Quarter: 2013Q1

REPORT INFORMATION
  Report Type: Other
  Country: US (occurrence: US)
  Receive Date: 20130305
  Receipt Date: 20130305
  Transmission Date: 20140127
  Serious: Yes (Death)
  Sender: FDA-Public Use
  Company Number: US-FRI-1000043027

PATIENT
  Age: 85 Year
  Sex: Male

DRUGS (9)
  1. CEFTAROLINE FOSAMIL [Suspect]
     Indication: STAPHYLOCOCCAL INFECTION
     Dosage: 400 MG IV EVERY 12 HOURS
     Route: 042
  2. CEFTAROLINE FOSAMIL [Suspect]
     Indication: ENDOCARDITIS
  3. CEFTAROLINE FOSAMIL [Suspect]
     Indication: INFECTION
  4. GENTAMICIN [Concomitant]
     Indication: STAPHYLOCOCCAL INFECTION
  5. GENTAMICIN [Concomitant]
     Indication: ENDOCARDITIS
  6. GENTAMICIN [Concomitant]
     Indication: INFECTION
  7. RIFAMPIN [Concomitant]
     Indication: STAPHYLOCOCCAL INFECTION
  8. RIFAMPIN [Concomitant]
     Indication: ENDOCARDITIS
  9. RIFAMPIN [Concomitant]
     Indication: INFECTION

REACTIONS (2)
  - Cardiac arrest [Fatal]
  - Off label use [Recovered/Resolved]
